FAERS Safety Report 9407382 (Version 2)
Quarter: 2013Q3

REPORT INFORMATION
  Report Type: Spontaneous
  Country: US (occurrence: US)
  Receive Date: 20130718
  Receipt Date: 20130805
  Transmission Date: 20140515
  Serious: No
  Sender: FDA-Public Use
  Company Number: US-009507513-1307USA004898

PATIENT
  Sex: Female

DRUGS (4)
  1. VICTRELIS [Suspect]
     Indication: CHRONIC HEPATITIS C
     Dosage: FOUR CAPSULES (800 MG) BY MOUTH THREE TIMES A DAY (EVERY 7-9H) WITH FOOD OR A SNACK
     Route: 048
     Dates: start: 20130604, end: 20130625
  2. RIBAPAK [Suspect]
     Dosage: TOTAL DAILY DOSE: 600 MG
     Route: 048
     Dates: start: 20120504
  3. PEGASYS [Suspect]
     Dosage: 180 MICROGRAM, QW
     Route: 058
     Dates: start: 20120409
  4. INCIVEK [Suspect]
     Dosage: UNK MG, UNK
     Route: 048
     Dates: start: 20120409, end: 20120409

REACTIONS (4)
  - Skin mass [Unknown]
  - Pruritus [Unknown]
  - Dry skin [Unknown]
  - Drug ineffective [Unknown]
